FAERS Safety Report 15707163 (Version 3)
Quarter: 2019Q2

REPORT INFORMATION
  Report Type: Report from Study
  Country: JP (occurrence: JP)
  Receive Date: 20181210
  Receipt Date: 20190522
  Transmission Date: 20190711
  Serious: No
  Sender: FDA-Public Use
  Company Number: JP-UCBSA-2018050729

PATIENT
  Age: 32 Year
  Sex: Male
  Weight: 82 kg

DRUGS (6)
  1. ANTEBATE [Concomitant]
     Active Substance: BETAMETHASONE DIPROPIONATE
     Indication: SOLAR DERMATITIS
     Dosage: UNK, 2X/DAY (BID)
     Dates: start: 20180816
  2. PROPETO [Concomitant]
     Active Substance: PETROLATUM
     Indication: PSORIASIS
     Dosage: UNK, AS NEEDED (PRN)
     Route: 061
     Dates: start: 20171026
  3. HIRUDOID [Concomitant]
     Active Substance: GLYCOSAMINOGLYCANS
     Indication: PSORIASIS
     Dosage: UNK, AS NEEDED (PRN)
     Route: 061
     Dates: start: 20170322
  4. MYSER [Concomitant]
     Indication: PSORIASIS
     Dosage: UNK, 2X/DAY (BID)
     Dates: start: 20171115
  5. OLOPATADINE HYDROCHLORIDE. [Concomitant]
     Active Substance: OLOPATADINE HYDROCHLORIDE
     Indication: PSORIASIS
     Dosage: 10 MG, 2X/DAY (BID)
     Route: 048
     Dates: start: 20180914
  6. CERTOLIZUMAB PEGOL VS PLACEBO [Suspect]
     Active Substance: CERTOLIZUMAB PEGOL
     Indication: PSORIASIS
     Dosage: 200 MILLIGRAM, EV 2 WEEKS(QOW)
     Route: 058
     Dates: start: 20171026, end: 20181011

REACTIONS (1)
  - Latent tuberculosis [Not Recovered/Not Resolved]

NARRATIVE: CASE EVENT DATE: 20181025
